FAERS Safety Report 17889072 (Version 1)
Quarter: 2020Q2

REPORT INFORMATION
  Report Type: Spontaneous
  Country: FR (occurrence: FR)
  Receive Date: 20200612
  Receipt Date: 20200612
  Transmission Date: 20200714
  Serious: Yes (Hospitalization)
  Sender: FDA-Public Use
  Company Number: FR-ACCORD-185082

PATIENT
  Age: 63 Year
  Sex: Male
  Weight: 57 kg

DRUGS (16)
  1. PEMETREXED. [Suspect]
     Active Substance: PEMETREXED
     Indication: LUNG ADENOCARCINOMA
     Route: 042
     Dates: start: 20200113
  2. SUCRALFATE. [Concomitant]
     Active Substance: SUCRALFATE
  3. QUETIAPINE/QUETIAPINE FUMARATE [Concomitant]
     Active Substance: QUETIAPINE FUMARATE
  4. TRAMADOL. [Concomitant]
     Active Substance: TRAMADOL
  5. PANTOPRAZOLE [Concomitant]
     Active Substance: PANTOPRAZOLE
  6. DOMPERIDONE [Concomitant]
     Active Substance: DOMPERIDONE
  7. CARBOPLATIN. [Suspect]
     Active Substance: CARBOPLATIN
     Indication: LUNG ADENOCARCINOMA
     Route: 042
     Dates: start: 20200113
  8. NEFOPAM [Concomitant]
     Active Substance: NEFOPAM
  9. ZOPICLONE [Concomitant]
     Active Substance: ZOPICLONE
  10. ALPRAZOLAM. [Concomitant]
     Active Substance: ALPRAZOLAM
  11. BISOPROLOL [Concomitant]
     Active Substance: BISOPROLOL
     Route: 048
  12. PEMBROLIZUMAB. [Suspect]
     Active Substance: PEMBROLIZUMAB
     Indication: LUNG ADENOCARCINOMA
     Route: 042
     Dates: start: 20200113
  13. FOLIC ACID. [Concomitant]
     Active Substance: FOLIC ACID
  14. DAFALGAN [Concomitant]
     Active Substance: ACETAMINOPHEN
  15. PREGABALIN. [Concomitant]
     Active Substance: PREGABALIN
  16. PERINDOPRIL [Concomitant]
     Active Substance: PERINDOPRIL

REACTIONS (2)
  - Hypokalaemia [Recovered/Resolved]
  - Pancytopenia [Recovered/Resolved]

NARRATIVE: CASE EVENT DATE: 20200124
